FAERS Safety Report 13946905 (Version 1)
Quarter: 2017Q3

REPORT INFORMATION
  Report Type: Other
  Country: None (occurrence: US)
  Receive Date: 20170907
  Receipt Date: 20170907
  Transmission Date: 20171128
  Serious: Yes (Other)
  Sender: FDA-Public Use
  Company Number: US-GUTHY-RENKER LLC-2025725

PATIENT
  Age: 51 Year
  Sex: Female

DRUGS (2)
  1. MEANINGFUL BEAUTY CINDY CRAWFORD ANTIOXIDANT SPF 20 UVA/UVB [Suspect]
     Active Substance: AVOBENZONE\OCTINOXATE\OCTISALATE\OXYBENZONE
     Indication: PROPHYLAXIS AGAINST SOLAR RADIATION
     Route: 061
     Dates: start: 20170402
  2. UNDISCLOSED DIABETES AND OTHER MEDICATIONS , EPIPEN PRN [Concomitant]

REACTIONS (2)
  - Anaphylactic reaction [Recovered/Resolved]
  - Erythema [None]

NARRATIVE: CASE EVENT DATE: 20170402
